FAERS Safety Report 10366836 (Version 4)
Quarter: 2017Q1

REPORT INFORMATION
  Report Type: Report from Study
  Country: DE (occurrence: DE)
  Receive Date: 20140807
  Receipt Date: 20170128
  Transmission Date: 20170428
  Serious: Yes (Hospitalization)
  Sender: FDA-Public Use
  Company Number: DE-AMGEN-DEUCT2014058327

PATIENT
  Age: 64 Year
  Sex: Female

DRUGS (6)
  1. BISOPROLOL [Concomitant]
     Active Substance: BISOPROLOL
     Dosage: 5 MG, QD
     Route: 048
     Dates: start: 2007
  2. DENOSUMAB [Suspect]
     Active Substance: DENOSUMAB
     Indication: BONE GIANT CELL TUMOUR
     Dosage: 120 MG, QMO
     Route: 058
     Dates: start: 20110721
  3. CALCICAL [Concomitant]
     Dosage: 880 IU, BID
     Route: 048
     Dates: start: 201107
  4. PROVAS [Concomitant]
     Active Substance: VALSARTAN
     Dosage: 160 MG, QD
     Route: 048
     Dates: start: 20110401
  5. AMLODIPIN [Concomitant]
     Active Substance: AMLODIPINE BESYLATE
     Dosage: 5 MG, QD
     Route: 048
     Dates: start: 20120621
  6. HCT [Concomitant]
     Active Substance: HYDROCHLOROTHIAZIDE
     Dosage: 12.5 MG, QD
     Route: 048
     Dates: start: 20110706

REACTIONS (1)
  - Localised infection [Recovering/Resolving]

NARRATIVE: CASE EVENT DATE: 20140730
